FAERS Safety Report 19130253 (Version 1)
Quarter: 2021Q2

REPORT INFORMATION
  Report Type: Report from Study
  Country: None (occurrence: BR)
  Receive Date: 20210414
  Receipt Date: 20210414
  Transmission Date: 20210717
  Serious: Yes (Disabling)
  Sender: FDA-Public Use
  Company Number: BR-ABBVIE-21K-020-3853374-00

PATIENT
  Age: 65 Year
  Sex: Female
  Weight: 62 kg

DRUGS (8)
  1. HUMIRA [Suspect]
     Active Substance: ADALIMUMAB
     Indication: RHEUMATOID ARTHRITIS
     Dosage: UNSPECIFIED DOSE
     Route: 058
     Dates: start: 20181213, end: 20210212
  2. XANTINON [Concomitant]
     Indication: PRODUCT USED FOR UNKNOWN INDICATION
  3. LOSARTAN. [Concomitant]
     Active Substance: LOSARTAN
     Indication: HYPERTENSION
     Dosage: 50/12,5MG
     Route: 065
  4. VITAMIN C + ZINC [Suspect]
     Active Substance: ASCORBIC ACID\ZINC
     Indication: INFLUENZA
     Route: 048
     Dates: start: 2020
  5. TECNOMET [Concomitant]
     Active Substance: METHOTREXATE
     Indication: ARTHRITIS
     Dosage: UNSPECIFIED DOSE
     Route: 065
  6. RISEDRONATE [Concomitant]
     Active Substance: RISEDRONATE SODIUM
     Indication: OSTEOPENIA
     Dosage: UNSPECIFIED DOSE
     Route: 065
     Dates: start: 202002
  7. CALCITRAN D3 [Concomitant]
     Active Substance: CALCIUM CARBONATE\CHOLECALCIFEROL
     Indication: OSTEOPENIA
     Dosage: UNSPECIFIED DOSE
     Route: 065
  8. PREGABALIN. [Concomitant]
     Active Substance: PREGABALIN
     Indication: PRODUCT USED FOR UNKNOWN INDICATION
     Dosage: UNSPECIFIED DOSE
     Route: 065

REACTIONS (12)
  - Skin disorder [Recovering/Resolving]
  - Arthralgia [Unknown]
  - Pain [Unknown]
  - Decreased appetite [Recovered/Resolved]
  - Influenza [Recovered/Resolved]
  - Influenza [Unknown]
  - Viral infection [Unknown]
  - Weight bearing difficulty [Recovered/Resolved]
  - Musculoskeletal disorder [Unknown]
  - Throat irritation [Recovered/Resolved]
  - Osteopenia [Unknown]
  - Peripheral swelling [Recovering/Resolving]

NARRATIVE: CASE EVENT DATE: 20210303
